FAERS Safety Report 4579580-1 (Version None)
Quarter: 2005Q1

REPORT INFORMATION
  Report Type: 
  Country: None (occurrence: None)
  Receive Date: 20050214
  Receipt Date: 20050201
  Transmission Date: 20050727
  Serious: Yes (Other)
  Sender: FDA-Public Use
  Company Number: NSADSS2003004584

PATIENT
  Age: 31 Year
  Sex: Male

DRUGS (8)
  1. REMICADE [Suspect]
     Indication: ANKYLOSING SPONDYLITIS
     Route: 041
  2. ACETAMINOPHEN [Concomitant]
  3. DEXTROPROPOXYPHEN [Concomitant]
  4. PREDNISONE [Concomitant]
  5. CALCIUM CARBONATE [Concomitant]
  6. DISODIC ETIDRONATE [Concomitant]
  7. OMEPRAZOLE [Concomitant]
  8. CAFFEINE [Concomitant]

REACTIONS (1)
  - CEREBRAL VENOUS THROMBOSIS [None]
